FAERS Safety Report 4548266-1 (Version None)
Quarter: 2004Q4

REPORT INFORMATION
  Report Type: 
  Country: None (occurrence: None)
  Receive Date: 20041227
  Receipt Date: 20041008
  Transmission Date: 20050328
  Serious: No
  Sender: FDA-Public Use
  Company Number: 04P-163-0276715-00

PATIENT
  Age: 61 Year
  Sex: Female
  Weight: 54.4316 kg

DRUGS (4)
  1. HUMIRA [Suspect]
     Indication: RHEUMATOID ARTHRITIS
     Dosage: 40 MG, 1 IN 2  WK, SUBCUTANEOUS
     Route: 058
     Dates: start: 20040301, end: 20040901
  2. SULFASALAZINE [Concomitant]
  3. HYDROXYCHLOROQUINE PHOSPHATE [Concomitant]
  4. ATORVASTATIN [Concomitant]

REACTIONS (2)
  - GLOSSODYNIA [None]
  - HERPES SIMPLEX [None]
